FAERS Safety Report 15888650 (Version 1)
Quarter: 2019Q1

REPORT INFORMATION
  Report Type: Spontaneous
  Country: US (occurrence: US)
  Receive Date: 20190129
  Receipt Date: 20190129
  Transmission Date: 20190417
  Serious: No
  Sender: FDA-Public Use
  Company Number: None

PATIENT
  Age: 42 Year
  Sex: Female
  Weight: 65.25 kg

DRUGS (6)
  1. MAGNESIUM [Concomitant]
     Active Substance: MAGNESIUM
  2. CALCIUM [Concomitant]
     Active Substance: CALCIUM
  3. MELATONIN [Concomitant]
     Active Substance: MELATONIN
  4. AIMOVIG [Suspect]
     Active Substance: ERENUMAB-AOOE
     Indication: MIGRAINE
     Dosage: SUBCUTANEOUS; 1 INJECTION(S); EVERY 28 DAYS?
     Route: 058
  5. COLACE [Concomitant]
     Active Substance: DOCUSATE SODIUM
  6. BIOTIN [Concomitant]
     Active Substance: BIOTIN

REACTIONS (3)
  - Heart rate increased [None]
  - Blood pressure increased [None]
  - Anxiety [None]
